FAERS Safety Report 18254486 (Version 6)
Quarter: 2024Q4

REPORT INFORMATION
  Report Type: Spontaneous
  Country: US (occurrence: US)
  Receive Date: 20200910
  Receipt Date: 20241015
  Transmission Date: 20250115
  Serious: Yes (Other)
  Sender: PFIZER
  Company Number: US-PFIZER INC-2020347990

PATIENT
  Age: 73 Year
  Sex: Female
  Weight: 77.56 kg

DRUGS (4)
  1. IBRANCE [Suspect]
     Active Substance: PALBOCICLIB
     Indication: Breast cancer metastatic
     Dosage: 21 DAYS OUT OF A MONTH, OFF FOR 7 DAYS AND THEN BACK FROM START
     Dates: start: 2019
  2. IBRANCE [Suspect]
     Active Substance: PALBOCICLIB
     Dosage: ONCE DAILY FOR 21 DAYS THEN OFF 7 DAYS AND THEN START BACK 21 DAYS
     Route: 048
     Dates: start: 20201105
  3. ANASTROZOLE [Concomitant]
     Active Substance: ANASTROZOLE
     Dosage: UNK
  4. SYNTHROID [Concomitant]
     Active Substance: LEVOTHYROXINE SODIUM
     Indication: Hypothyroidism
     Dosage: EVERY MORNING

REACTIONS (13)
  - Choking [Unknown]
  - Dyspnoea [Unknown]
  - Product use complaint [Unknown]
  - Dysphagia [Unknown]
  - Vomiting [Unknown]
  - Breast pain [Unknown]
  - Malaise [Unknown]
  - Dysstasia [Unknown]
  - Back pain [Unknown]
  - Bradykinesia [Unknown]
  - Pain [Recovering/Resolving]
  - Musculoskeletal chest pain [Unknown]
  - Body height decreased [Unknown]

NARRATIVE: CASE EVENT DATE: 20201101
